FAERS Safety Report 17377935 (Version 1)
Quarter: 2020Q1

REPORT INFORMATION
  Report Type: Spontaneous
  Country: US (occurrence: US)
  Receive Date: 20200122
  Receipt Date: 20200122
  Transmission Date: 20200409
  Serious: No
  Sender: FDA-Public Use
  Company Number: None

PATIENT
  Sex: Male

DRUGS (1)
  1. CEFAZOLIN SODIUM. [Suspect]
     Active Substance: CEFAZOLIN SODIUM
     Indication: ARTHRITIS
     Dosage: ?          OTHER FREQUENCY:Q8HOURS ;?
     Route: 042
     Dates: start: 20191221, end: 20200120

REACTIONS (2)
  - Rash [None]
  - Pruritus [None]
